FAERS Safety Report 5954568-4 (Version None)
Quarter: 2008Q4

REPORT INFORMATION
  Report Type: 
  Country: None (occurrence: None)
  Receive Date: 20081117
  Receipt Date: 20081113
  Transmission Date: 20090506
  Serious: Yes (Hospitalization)
  Sender: FDA-Public Use
  Company Number: US-BIOGENIDEC-2006BI018881

PATIENT
  Sex: Female
  Weight: 48 kg

DRUGS (1)
  1. AVONEX [Suspect]
     Indication: MULTIPLE SCLEROSIS
     Route: 030
     Dates: start: 20040730

REACTIONS (4)
  - FAILURE TO THRIVE [None]
  - MULTIPLE SCLEROSIS [None]
  - OSTEOPOROSIS [None]
  - SPINAL DISORDER [None]
